FAERS Safety Report 23540801 (Version 3)
Quarter: 2024Q3

REPORT INFORMATION
  Report Type: Spontaneous
  Country: US (occurrence: US)
  Receive Date: 20240219
  Receipt Date: 20240723
  Transmission Date: 20241017
  Serious: No
  Sender: STEMLINE THERAPEUTICS
  Company Number: US-Stemline Therapeutics, Inc.-2023ST005473

PATIENT
  Age: 55 Year
  Sex: Female
  Weight: 54.48 kg

DRUGS (2)
  1. ORSERDU [Suspect]
     Active Substance: ELACESTRANT
     Indication: Breast cancer metastatic
     Dosage: 345 MG, ORAL, ONCE DAILY
     Route: 048
     Dates: start: 20230111
  2. SYNTHROID [Concomitant]
     Active Substance: LEVOTHYROXINE SODIUM
     Indication: Product used for unknown indication
     Dosage: 125MCG DAILY
     Dates: start: 2002

REACTIONS (6)
  - Ligament sprain [Unknown]
  - Chest wall tumour [Not Recovered/Not Resolved]
  - Neck mass [Recovering/Resolving]
  - Bone neoplasm [Not Recovered/Not Resolved]
  - Metastases to liver [Not Recovered/Not Resolved]
  - Pain in extremity [Recovering/Resolving]

NARRATIVE: CASE EVENT DATE: 20240101
